FAERS Safety Report 6530084-6 (Version None)
Quarter: 2010Q1

REPORT INFORMATION
  Report Type: 
  Country: None (occurrence: None)
  Receive Date: 20100107
  Receipt Date: 20091231
  Transmission Date: 20100710
  Serious: Yes (Death, Hospitalization, Other)
  Sender: FDA-Public Use
  Company Number: US-SANOFI-AVENTIS-2010SA000181

PATIENT
  Age: 86 Year
  Sex: Male
  Weight: 83.9 kg

DRUGS (2)
  1. PLAVIX [Suspect]
     Route: 048
     Dates: start: 20090901, end: 20091222
  2. DILANTIN /AUS/ [Concomitant]
     Route: 065
     Dates: start: 20090701

REACTIONS (4)
  - COLLAPSE OF LUNG [None]
  - CONVULSION [None]
  - PNEUMONIA [None]
  - RENAL FAILURE [None]
